FAERS Safety Report 9844441 (Version 2)
Quarter: 2014Q1

REPORT INFORMATION
  Report Type: Report from Study
  Country: CH (occurrence: CH)
  Receive Date: 20140127
  Receipt Date: 20140211
  Transmission Date: 20141002
  Serious: Yes (Hospitalization)
  Sender: FDA-Public Use
  Company Number: CH-ROCHE-1338221

PATIENT
  Age: 70 Year
  Sex: Male

DRUGS (3)
  1. RITUXIMAB [Suspect]
     Indication: B-CELL LYMPHOMA
     Dosage: LAST DOSE PRIOR TO SAE: 14/JAN/2014
     Route: 042
     Dates: start: 20140114
  2. BENDAMUSTINE [Suspect]
     Indication: B-CELL LYMPHOMA
     Dosage: LAST DOSE PRIOR TO SAE: 15/JAN/2014
     Route: 042
     Dates: start: 20140114
  3. REVLIMID [Suspect]
     Indication: B-CELL LYMPHOMA
     Dosage: LAST DOSE PRIOR TO SAE: 20/JAN/2014
     Route: 048

REACTIONS (3)
  - Hypoxia [Recovered/Resolved]
  - Dyspnoea [Recovered/Resolved]
  - Cough [Recovered/Resolved]
